FAERS Safety Report 10419554 (Version 1)
Quarter: 2014Q3

REPORT INFORMATION
  Report Type: Spontaneous
  Country: IN (occurrence: IN)
  Receive Date: 20140829
  Receipt Date: 20140829
  Transmission Date: 20150326
  Serious: Yes (Other)
  Sender: FDA-Public Use
  Company Number: PHHY2014IN106057

PATIENT
  Age: 22 Year
  Sex: Male

DRUGS (4)
  1. CICLOSPORIN [Suspect]
     Active Substance: CYCLOSPORINE
  2. METHOTREXATE [Concomitant]
     Active Substance: METHOTREXATE
     Route: 037
  3. HYDROCORTISONE. [Concomitant]
     Active Substance: HYDROCORTISONE
  4. PREDNISOLONE. [Concomitant]
     Active Substance: PREDNISOLONE

REACTIONS (2)
  - Renal impairment [Recovered/Resolved]
  - Toxicity to various agents [Unknown]
